FAERS Safety Report 6326119-6 (Version None)
Quarter: 2009Q3

REPORT INFORMATION
  Report Type: 
  Country: None (occurrence: None)
  Receive Date: 20090824
  Receipt Date: 20090820
  Transmission Date: 20100115
  Serious: Yes (Death, Hospitalization)
  Sender: FDA-Public Use
  Company Number: PHHY2009CN35192

PATIENT
  Age: 47 Year
  Sex: Male

DRUGS (3)
  1. MYCOPHENOLIC ACID [Suspect]
     Indication: LIVER TRANSPLANT
     Dosage: 0.75 G, BID
     Route: 048
  2. METHYLPREDNISOLONE [Concomitant]
     Indication: LIVER TRANSPLANT
     Route: 042
  3. ZENAPAX [Concomitant]
     Indication: LIVER TRANSPLANT
     Dosage: UNK

REACTIONS (13)
  - ALTERED STATE OF CONSCIOUSNESS [None]
  - AUTONOMIC NERVOUS SYSTEM IMBALANCE [None]
  - COMA [None]
  - HYPERTONIA [None]
  - HYPOTONIA [None]
  - LUNG INFECTION [None]
  - MULTI-ORGAN FAILURE [None]
  - MUSCULAR WEAKNESS [None]
  - OSMOTIC DEMYELINATION SYNDROME [None]
  - RENAL IMPAIRMENT [None]
  - SEPSIS [None]
  - SPEECH DISORDER [None]
  - TRACHEOSTOMY [None]
